FAERS Safety Report 5814555-3 (Version None)
Quarter: 2008Q3

REPORT INFORMATION
  Report Type: 
  Country: None (occurrence: None)
  Receive Date: 20080718
  Receipt Date: 20070912
  Transmission Date: 20090109
  Serious: No
  Sender: FDA-Public Use
  Company Number: US-KINGPHARMUSA00001-K200701172

PATIENT

DRUGS (2)
  1. LEVOXYL [Suspect]
     Indication: HYPOTHYROIDISM
     Dosage: 50 MCG, QD
     Route: 048
  2. LEVOXYL [Suspect]
     Dosage: 75 MCG, QD
     Route: 048

REACTIONS (4)
  - ERYTHEMA [None]
  - LYMPHADENOPATHY [None]
  - PRURITUS [None]
  - URTICARIA [None]
